FAERS Safety Report 4494519-5 (Version None)
Quarter: 2004Q4

REPORT INFORMATION
  Report Type: 
  Country: None (occurrence: None)
  Receive Date: 20041103
  Receipt Date: 20041027
  Transmission Date: 20050328
  Serious: Yes (Other)
  Sender: FDA-Public Use
  Company Number: DEU-2004-0001043

PATIENT
  Sex: Female

DRUGS (1)
  1. OXYGESIC  (OXYCODONE HYDROCHLORIDE) CR [Suspect]
     Indication: OFF LABEL USE

REACTIONS (2)
  - DRUG EXPOSURE DURING PREGNANCY [None]
  - SELF-MEDICATION [None]
